FAERS Safety Report 9277991 (Version 1)
Quarter: 2013Q2

REPORT INFORMATION
  Report Type: Spontaneous
  Country: US (occurrence: US)
  Receive Date: 20130508
  Receipt Date: 20130508
  Transmission Date: 20140414
  Serious: Yes (Other)
  Sender: FDA-Public Use
  Company Number: US-SANOFI-AVENTIS-2013SA024463

PATIENT
  Age: 52 Year
  Sex: Female
  Weight: 51.7 kg

DRUGS (5)
  1. ZALTRAP [Suspect]
     Dosage: FREQUENCY: Q 2 WEEKS
     Route: 041
     Dates: start: 20121105, end: 20121105
  2. IRINOTECAN HYDROCHLORIDE [Suspect]
  3. 5-FU [Suspect]
  4. CALCIUM LEVOFOLINATE [Suspect]
  5. BEVACIZUMAB [Suspect]

REACTIONS (2)
  - Cerebral infarction [Recovered/Resolved]
  - Central nervous system haemorrhage [Recovered/Resolved]
